FAERS Safety Report 23842890 (Version 1)
Quarter: 2024Q2

REPORT INFORMATION
  Report Type: Report from Study
  Country: US (occurrence: US)
  Receive Date: 20240510
  Receipt Date: 20240510
  Transmission Date: 20240715
  Serious: Yes (Hospitalization, Other)
  Sender: FDA-Public Use
  Company Number: US-OTSUKA PHARMACEUTICAL NETHERLANDS B.V.-AUR-005798

PATIENT
  Sex: Female

DRUGS (1)
  1. LUPKYNIS [Suspect]
     Active Substance: VOCLOSPORIN
     Indication: Lupus nephritis
     Dosage: 23.7 MILLIGRAM, BID
     Route: 048
     Dates: start: 20230901

REACTIONS (9)
  - Gastroenteritis viral [Unknown]
  - Blood creatinine increased [Unknown]
  - Tachycardia [Unknown]
  - Metabolic acidosis [Unknown]
  - Acute kidney injury [Recovered/Resolved]
  - Haematuria [Unknown]
  - Proteinuria [Unknown]
  - Weight increased [Unknown]
  - Hypertension [Unknown]
